FAERS Safety Report 7586602-2 (Version None)
Quarter: 2011Q3

REPORT INFORMATION
  Report Type: 
  Country: None (occurrence: None)
  Receive Date: 20110701
  Receipt Date: 20110623
  Transmission Date: 20111222
  Serious: Yes (Hospitalization)
  Sender: FDA-Public Use
  Company Number: US-US-EMD SERONO, INC.-7041431

PATIENT
  Sex: Female

DRUGS (2)
  1. REBIF [Suspect]
     Indication: MULTIPLE SCLEROSIS
     Route: 058
     Dates: start: 20041122, end: 20110101
  2. REBIF [Suspect]
     Route: 058
     Dates: start: 20110101

REACTIONS (2)
  - LUMBAR RADICULOPATHY [None]
  - GINGIVAL RECESSION [None]
